FAERS Safety Report 24731329 (Version 1)
Quarter: 2024Q4

REPORT INFORMATION
  Report Type: Spontaneous
  Country: US (occurrence: None)
  Receive Date: 20241212
  Receipt Date: 20241212
  Transmission Date: 20250114
  Serious: No
  Sender: Public
  Company Number: None

PATIENT
  Age: 66 Year
  Sex: Female
  Weight: 130.95 kg

DRUGS (26)
  1. LAGEVRIO [Suspect]
     Active Substance: MOLNUPIRAVIR
     Indication: COVID-19
     Dosage: 4 CAPSULES EVERY 12 HOURS ORAL ?
     Route: 048
     Dates: start: 20241204, end: 20241209
  2. LEVOTHYROXINE [Concomitant]
     Active Substance: LEVOTHYROXINE
  3. METOPROLOL [Concomitant]
     Active Substance: METOPROLOL
  4. GABAPENTIN [Concomitant]
     Active Substance: GABAPENTIN
  5. OMEPRAZOLE [Concomitant]
     Active Substance: OMEPRAZOLE
  6. FLUCONAZOLE [Concomitant]
     Active Substance: FLUCONAZOLE
  7. BUPROPION [Concomitant]
     Active Substance: BUPROPION
  8. CITALOPRAM [Concomitant]
     Active Substance: CITALOPRAM
  9. ATORVASTATIN [Concomitant]
     Active Substance: ATORVASTATIN
  10. clopidigral [Concomitant]
  11. CETIRIZINE [Concomitant]
     Active Substance: CETIRIZINE HYDROCHLORIDE
  12. EZETIMIBE [Concomitant]
     Active Substance: EZETIMIBE
  13. OZEMPIC [Concomitant]
     Active Substance: SEMAGLUTIDE
  14. INSULIN HUMAN [Concomitant]
     Active Substance: INSULIN HUMAN
  15. insulin fast-acting [Concomitant]
  16. CYANOCOBALAMIN [Concomitant]
     Active Substance: CYANOCOBALAMIN
  17. KETOCONAZOLE [Concomitant]
     Active Substance: KETOCONAZOLE
  18. LOW-DOSE ASPIRIN [Concomitant]
     Active Substance: ASPIRIN
  19. MELATONIN [Concomitant]
     Active Substance: MELATONIN
  20. ACIDOPHILUS [Concomitant]
     Active Substance: LACTOBACILLUS ACIDOPHILUS
  21. VITAMIN E [Concomitant]
     Active Substance: .ALPHA.-TOCOPHEROL
  22. ZINC [Concomitant]
     Active Substance: ZINC
  23. VITAMIN D3 [Concomitant]
     Active Substance: CHOLECALCIFEROL
  24. CALCIUM CITRATE + D3 [Concomitant]
  25. DOCUSATE SODIUM [Concomitant]
     Active Substance: DOCUSATE SODIUM
  26. CORTIZONE 10 [Concomitant]
     Active Substance: HYDROCORTISONE

REACTIONS (3)
  - Skin mass [None]
  - Rash erythematous [None]
  - Rash [None]

NARRATIVE: CASE EVENT DATE: 20241207
